FAERS Safety Report 4957871-X (Version None)
Quarter: 2006Q1

REPORT INFORMATION
  Report Type: 
  Country: None (occurrence: None)
  Receive Date: 20060324
  Receipt Date: 20060315
  Transmission Date: 20060701
  Serious: Yes (Hospitalization)
  Sender: FDA-Public Use
  Company Number: EM2004-0371

PATIENT
  Age: 3 Year
  Sex: Male

DRUGS (2)
  1. TOBI [Suspect]
     Indication: PSEUDOMONAS INFECTION
     Dosage: 300 MG, BID, INHALATION
     Route: 055
     Dates: start: 20040413, end: 20040510
  2. TOBI [Suspect]

REACTIONS (2)
  - CULTURE THROAT POSITIVE [None]
  - STENOTROPHOMONAS INFECTION [None]
